FAERS Safety Report 5245516-3 (Version None)
Quarter: 2007Q1

REPORT INFORMATION
  Report Type: 
  Country: None (occurrence: None)
  Receive Date: 20070223
  Receipt Date: 20070212
  Transmission Date: 20070707
  Serious: Yes (Life-Threatening, Hospitalization, Other)
  Sender: FDA-Public Use
  Company Number: CA-PFIZER INC-2006119344

PATIENT
  Sex: Male
  Weight: 98.8 kg

DRUGS (10)
  1. SU-011,248 [Suspect]
     Indication: RENAL CELL CARCINOMA STAGE UNSPECIFIED
     Route: 048
  2. PREVACID [Concomitant]
     Route: 048
  3. TERAZOSIN HCL [Concomitant]
     Route: 048
     Dates: start: 20050901
  4. EFFEXOR XR [Concomitant]
     Route: 048
     Dates: start: 20041101
  5. BISOPROLOL FUMARATE [Concomitant]
     Route: 048
     Dates: start: 20030701
  6. ASCORBIC ACID [Concomitant]
     Route: 042
     Dates: start: 20031001
  7. FLAXSEED OIL [Concomitant]
     Route: 048
     Dates: start: 20031001
  8. DIFLUCAN [Concomitant]
     Route: 048
     Dates: start: 20050101
  9. REACTINE [Concomitant]
     Route: 048
     Dates: start: 20060803
  10. OXEZE TURBUHALER [Concomitant]
     Route: 048

REACTIONS (2)
  - CEREBROVASCULAR ACCIDENT [None]
  - LIPASE INCREASED [None]
